FAERS Safety Report 4380985-2 (Version None)
Quarter: 2004Q2

REPORT INFORMATION
  Report Type: 
  Country: None (occurrence: None)
  Receive Date: 20040614
  Receipt Date: 20040602
  Transmission Date: 20050107
  Serious: Yes (Hospitalization, Other)
  Sender: FDA-Public Use
  Company Number: GBWYE805204JUN04

PATIENT
  Age: 39 Year
  Sex: Male

DRUGS (15)
  1. RAPAMUNE [Suspect]
     Dosage: 5 MG 1X PER 1 DAY; ORAL
     Route: 048
     Dates: start: 20031121
  2. CELLCEPT [Suspect]
     Dosage: 1 G 2X PER 1 DAY; ORAL
     Route: 048
     Dates: start: 20021121
  3. PREDNISONE [Suspect]
     Dosage: 20 MG 1X PER 1 DAY; ORAL
     Route: 048
     Dates: start: 20031121
  4. ZENEPAX (DACLIZUMAB, ,0) [Suspect]
     Dosage: 75 MG, FREQUENCY UNKNOWN; INTRAVENOUS
     Route: 042
  5. ZENEPAX (DACLIZUMAB , , 0) [Suspect]
     Dosage: 75MG, FREQUENCY UNKNOWN; INTRAVENOUS
     Route: 036
     Dates: start: 20031211
  6. ASPIRIN [Concomitant]
  7. OMEPRAZOLE [Concomitant]
  8. ALFACALCIDOL [Concomitant]
  9. ACETAMINOPHEN [Concomitant]
  10. ATORVASTATIN CALCIUM [Concomitant]
  11. GANCICLOVIR [Concomitant]
  12. DOXAZOSIN [Concomitant]
  13. ATENOLOL [Concomitant]
  14. FERROUS SULFATE TAB [Concomitant]
  15. SENNA [Concomitant]

REACTIONS (11)
  - ABDOMINAL PAIN UPPER [None]
  - BLOOD CREATININE INCREASED [None]
  - CHEST PAIN [None]
  - ELECTROCARDIOGRAM T WAVE ABNORMAL [None]
  - HAEMOGLOBIN DECREASED [None]
  - HYPERTENSION [None]
  - NAUSEA [None]
  - OEDEMA PERIPHERAL [None]
  - PRODUCTIVE COUGH [None]
  - PULMONARY OEDEMA [None]
  - SCROTAL SWELLING [None]
